FAERS Safety Report 5977617-6 (Version None)
Quarter: 2009Q1

REPORT INFORMATION
  Report Type: 
  Country: None (occurrence: None)
  Receive Date: 20081203
  Receipt Date: 20081001
  Transmission Date: 20090719
  Serious: Yes (Hospitalization)
  Sender: FDA-Public Use
  Company Number: AT-MERCK-0811AUT00009

PATIENT
  Sex: Female

DRUGS (1)
  1. DORZOLAMIDE HYDROCHLORIDE AND TIMOLOL MALEATE [Suspect]
     Indication: GLAUCOMA
     Route: 047
     Dates: start: 20080101, end: 20081001

REACTIONS (2)
  - AMNESIA [None]
  - CONFUSIONAL STATE [None]
